FAERS Safety Report 5087802-6 (Version None)
Quarter: 2006Q3

REPORT INFORMATION
  Report Type: 
  Country: None (occurrence: None)
  Receive Date: 20060821
  Receipt Date: 20060821
  Transmission Date: 20061208
  Serious: Yes (Other)
  Sender: FDA-Public Use
  Company Number: None

PATIENT
  Sex: Female
  Weight: 69.51 kg

DRUGS (1)
  1. VANCOMYCIN [Suspect]
     Indication: CHRONIC SINUSITIS
     Dosage: 1.75GM    EVERY 12 HOURS   IV
     Route: 042
     Dates: start: 20060724, end: 20060815

REACTIONS (1)
  - WHITE BLOOD CELL COUNT DECREASED [None]
